FAERS Safety Report 7159017-9 (Version None)
Quarter: 2010Q4

REPORT INFORMATION
  Report Type: 
  Country: None (occurrence: None)
  Receive Date: 20101214
  Receipt Date: 20080904
  Transmission Date: 20110411
  Serious: Yes (Hospitalization, Other)
  Sender: FDA-Public Use
  Company Number: FR-JNJCH-2008023309

PATIENT
  Sex: Male

DRUGS (1)
  1. ALOSTIL 2% [Suspect]
     Indication: ALOPECIA
     Dosage: TEXT:TWICE A DAY
     Route: 061
     Dates: start: 20080530, end: 20080530

REACTIONS (3)
  - ACUTE CORONARY SYNDROME [None]
  - HYPOTENSION [None]
  - INCORRECT ROUTE OF DRUG ADMINISTRATION [None]
